FAERS Safety Report 8028960-0 (Version None)
Quarter: 2012Q1

REPORT INFORMATION
  Report Type: 
  Country: None (occurrence: None)
  Receive Date: 20120106
  Receipt Date: 20111230
  Transmission Date: 20120608
  Serious: Yes (Other)
  Sender: FDA-Public Use
  Company Number: ES-AMGEN-ESPSP2011068373

PATIENT
  Age: 80 Year
  Sex: Female

DRUGS (11)
  1. SIMVASTATIN [Concomitant]
     Dosage: 40 MG, QD
  2. CYMBALTA [Concomitant]
     Dosage: 60 MG, UNK
  3. HIDROFEROL [Concomitant]
     Dosage: 266 MG, QMO
  4. LEXATIN                            /00424801/ [Concomitant]
     Dosage: 1.5 MG, QD
  5. METFORMIN HCL [Concomitant]
     Indication: DIABETES MELLITUS
     Dosage: 850 MG, QD
  6. ANTIDEPRESSANTS [Concomitant]
     Indication: DEPRESSION
  7. BENZODIAZEPINE DERIVATIVES [Concomitant]
     Indication: DEPRESSION
  8. PROLIA [Suspect]
     Indication: PRODUCT USED FOR UNKNOWN INDICATION
     Dosage: 60 MG, Q6MO
     Route: 058
     Dates: start: 20111205
  9. DIAMICRON [Concomitant]
     Dosage: 30 MG, QD
  10. IDEOS UNIDIA [Concomitant]
  11. IBUPROFEN [Concomitant]
     Dosage: 600 MG, Q8H

REACTIONS (3)
  - URINARY TRACT INFECTION [None]
  - CONFUSIONAL STATE [None]
  - DEPRESSION [None]
